FAERS Safety Report 20937699 (Version 1)
Quarter: 2022Q2

REPORT INFORMATION
  Report Type: Spontaneous
  Country: US (occurrence: None)
  Receive Date: 20220608
  Receipt Date: 20220608
  Transmission Date: 20220721
  Serious: Yes (Disabling)
  Sender: FDA-Public Use
  Company Number: None

PATIENT
  Age: 47 Year
  Sex: Female
  Weight: 148.5 kg

DRUGS (1)
  1. BUPRENORPHINE\NALOXONE [Suspect]
     Active Substance: BUPRENORPHINE\NALOXONE
     Indication: Pain
     Route: 060
     Dates: start: 20200330, end: 20210130

REACTIONS (3)
  - Dental caries [None]
  - Skin indentation [None]
  - Tooth extraction [None]

NARRATIVE: CASE EVENT DATE: 20200330
